FAERS Safety Report 8782568 (Version 2)
Quarter: 2012Q4

REPORT INFORMATION
  Report Type: 
  Country: US (occurrence: US)
  Receive Date: 20120913
  Receipt Date: 20121003
  Transmission Date: 20130627
  Serious: Yes (Other)
  Sender: FDA-Public Use
  Company Number: US-009507513-1208USA007679

PATIENT
  Age: 54 None
  Sex: Female
  Weight: 45.35 kg

DRUGS (6)
  1. PEGINTRON [Suspect]
     Indication: HEPATITIS C
     Dosage: 80 Microgram (4 syr/)
     Route: 058
     Dates: start: 20120713
  2. REBETOL [Suspect]
     Indication: HEPATITIS C
     Dosage: 200 mg, UNK
     Route: 048
     Dates: start: 20120713
  3. TELAPREVIR [Suspect]
     Indication: HEPATITIS C
     Dosage: 750 mg, tid (Incivek 4x42 tabs)
     Route: 048
     Dates: start: 20120713
  4. PROMETHAZINE [Concomitant]
     Dosage: 12.5 mg, UNK
     Route: 048
  5. BENADRYL [Concomitant]
     Dosage: 25 mg, UNK
     Route: 048
  6. ZOLOFT [Concomitant]
     Dosage: 50 mg, UNK
     Route: 048

REACTIONS (15)
  - Diabetes mellitus [Unknown]
  - Postmenopausal haemorrhage [Unknown]
  - Disease recurrence [Unknown]
  - Injection site urticaria [Unknown]
  - Postmenopausal haemorrhage [Unknown]
  - Eating disorder [Unknown]
  - Vomiting [Unknown]
  - Nervousness [Unknown]
  - Malaise [Unknown]
  - Nausea [Unknown]
  - Weight decreased [Unknown]
  - Nausea [Unknown]
  - Diarrhoea [Recovered/Resolved]
  - Nausea [Recovered/Resolved]
  - Pruritus [Unknown]
